FAERS Safety Report 8013175-2 (Version None)
Quarter: 2011Q4

REPORT INFORMATION
  Report Type: 
  Country: None (occurrence: None)
  Receive Date: 20111229
  Receipt Date: 20111221
  Transmission Date: 20120403
  Serious: Yes (Other)
  Sender: FDA-Public Use
  Company Number: US-AMGEN-USASP2011060615

PATIENT
  Age: 58 Year
  Sex: Female

DRUGS (2)
  1. PREDNISONE TAB [Concomitant]
     Dosage: UNK
  2. ENBREL [Suspect]
     Indication: RHEUMATOID ARTHRITIS
     Dosage: 25 MG, 2 TIMES/WK
     Dates: start: 19990601

REACTIONS (6)
  - ARTHRITIS [None]
  - FATIGUE [None]
  - INJECTION SITE PAIN [None]
  - HYPERTENSION [None]
  - BREAST CANCER FEMALE [None]
  - GLAUCOMA [None]
